FAERS Safety Report 9769209 (Version 4)
Quarter: 2015Q4

REPORT INFORMATION
  Report Type: Spontaneous
  Country: US (occurrence: US)
  Receive Date: 20131218
  Receipt Date: 20151106
  Transmission Date: 20160305
  Serious: Yes (Hospitalization, Other)
  Sender: FDA-Public Use
  Company Number: US-BAYER-2013-154613

PATIENT
  Age: 35 Year
  Sex: Female
  Weight: 124.72 kg

DRUGS (2)
  1. MIRENA [Suspect]
     Active Substance: LEVONORGESTREL
     Indication: CONTRACEPTION
     Dosage: 20 MCG/24HR, CONT
     Route: 015
     Dates: start: 20100923, end: 20131029
  2. MIRENA [Suspect]
     Active Substance: LEVONORGESTREL
     Indication: MENORRHAGIA

REACTIONS (15)
  - Complication of pregnancy [None]
  - Device breakage [None]
  - Premature delivery [None]
  - Device difficult to use [None]
  - Psychological trauma [None]
  - Fear [None]
  - Foetal placental thrombosis [None]
  - Complication of device removal [None]
  - Uterine perforation [None]
  - Menorrhagia [None]
  - Emotional distress [None]
  - Injury [None]
  - Genital haemorrhage [None]
  - Device issue [None]
  - Pain [None]

NARRATIVE: CASE EVENT DATE: 201010
